FAERS Safety Report 6045271-3 (Version None)
Quarter: 2009Q1

REPORT INFORMATION
  Report Type: 
  Country: None (occurrence: None)
  Receive Date: 20090121
  Receipt Date: 20090109
  Transmission Date: 20090719
  Serious: Yes (Hospitalization, Other)
  Sender: FDA-Public Use
  Company Number: PHBS2009AU00482

PATIENT
  Age: 26 Year
  Sex: Male

DRUGS (2)
  1. CLOZAPINE [Suspect]
     Indication: SCHIZOPHRENIA
     Dosage: 150 MG/DAY
     Dates: start: 19950201
  2. CLOZAPINE [Suspect]
     Dosage: 600 MG/DAY

REACTIONS (12)
  - ABNORMAL BEHAVIOUR [None]
  - AGRANULOCYTOSIS [None]
  - COPROLALIA [None]
  - EXCESSIVE EYE BLINKING [None]
  - GRUNTING [None]
  - HALLUCINATION, AUDITORY [None]
  - MENTAL DISORDER [None]
  - MUSCULOSKELETAL DISCOMFORT [None]
  - OBSESSIVE-COMPULSIVE DISORDER [None]
  - PSYCHOTIC DISORDER [None]
  - TIC [None]
  - TOURETTE'S DISORDER [None]
